FAERS Safety Report 24151578 (Version 1)
Quarter: 2024Q3

REPORT INFORMATION
  Report Type: Spontaneous
  Country: US (occurrence: US)
  Receive Date: 20240730
  Receipt Date: 20240730
  Transmission Date: 20241016
  Serious: No
  Sender: PERRIGO
  Company Number: US-PERRIGO-23US013286

PATIENT
  Age: 89 Year
  Sex: Male
  Weight: 79.365 kg

DRUGS (8)
  1. LORATADINE [Suspect]
     Active Substance: LORATADINE
     Indication: Seasonal allergy
     Dosage: 10 MG, QD
     Route: 048
     Dates: start: 20231006, end: 20231112
  2. LORATADINE [Suspect]
     Active Substance: LORATADINE
     Dosage: 20 MG, QD
     Route: 048
     Dates: start: 20231113
  3. INSULIN NOS [Concomitant]
     Active Substance: INSULIN NOS
     Indication: Diabetes mellitus
     Dosage: UNK
     Route: 065
  4. PHYTOSTEROLS [Concomitant]
     Active Substance: PHYTOSTEROLS
     Indication: Supplementation therapy
     Dosage: UNK
     Route: 065
  5. OSTEO-BI-FLEX [Concomitant]
     Indication: Supplementation therapy
     Dosage: UNK
     Route: 065
  6. PREVAGEN [APOAEQUORIN] [Concomitant]
     Indication: Supplementation therapy
     Dosage: UNK
     Route: 065
  7. GARLIQUE [Concomitant]
     Active Substance: GARLIC
     Indication: Supplementation therapy
     Dosage: UNK
     Route: 065
  8. VITAMINS [Concomitant]
     Active Substance: VITAMINS
     Indication: Supplementation therapy
     Dosage: UNK
     Route: 065

REACTIONS (2)
  - Drug ineffective [Unknown]
  - Incorrect dose administered [Unknown]

NARRATIVE: CASE EVENT DATE: 20231006
